FAERS Safety Report 17212664 (Version 1)
Quarter: 2019Q4

REPORT INFORMATION
  Report Type: Spontaneous
  Country: DE (occurrence: DE)
  Receive Date: 20191230
  Receipt Date: 20191230
  Transmission Date: 20200122
  Serious: Yes (Other)
  Sender: FDA-Public Use
  Company Number: NVSC2019DE075621

PATIENT
  Sex: Female

DRUGS (6)
  1. FASLODEX [Concomitant]
     Active Substance: FULVESTRANT
     Indication: BREAST CANCER
     Dosage: 250 MG, BID
     Route: 065
     Dates: start: 201806, end: 201808
  2. ERIBULIN [Suspect]
     Active Substance: ERIBULIN
     Indication: PRODUCT USED FOR UNKNOWN INDICATION
     Dosage: UNK
     Route: 042
     Dates: start: 201904
  3. VINORELBINE [Suspect]
     Active Substance: VINORELBINE TARTRATE
     Indication: BREAST CANCER METASTATIC
     Dosage: UNK
     Route: 065
     Dates: start: 201804, end: 201806
  4. AFINITOR [Suspect]
     Active Substance: EVEROLIMUS
     Indication: BREAST CANCER METASTATIC
     Dosage: 1 DF, QD
     Route: 065
     Dates: start: 201806, end: 201808
  5. FOLINIC ACID [Concomitant]
     Active Substance: LEUCOVORIN
     Indication: BREAST CANCER
     Dosage: UNK
     Route: 065
     Dates: start: 201808, end: 201904
  6. FLUOROURACIL. [Concomitant]
     Active Substance: FLUOROURACIL
     Indication: BREAST CANCER
     Dosage: UNK
     Route: 065
     Dates: start: 201808, end: 201904

REACTIONS (16)
  - Polyneuropathy [Unknown]
  - White blood cell count decreased [Unknown]
  - Metastases to liver [Unknown]
  - Metastases to peritoneum [Unknown]
  - Alanine aminotransferase increased [Unknown]
  - Red cell distribution width increased [Unknown]
  - Blood lactate dehydrogenase increased [Unknown]
  - Metastases to bone [Unknown]
  - Breast cancer metastatic [Unknown]
  - Gamma-glutamyltransferase increased [Unknown]
  - Mucosal inflammation [Unknown]
  - Endocrine disorder [Unknown]
  - Palmar-plantar erythrodysaesthesia syndrome [Unknown]
  - Malignant neoplasm progression [Unknown]
  - Platelet count decreased [Unknown]
  - Drug intolerance [Unknown]

NARRATIVE: CASE EVENT DATE: 2018
